FAERS Safety Report 17622775 (Version 1)
Quarter: 2020Q2

REPORT INFORMATION
  Report Type: Spontaneous
  Country: US (occurrence: US)
  Receive Date: 20200403
  Receipt Date: 20200403
  Transmission Date: 20200713
  Serious: Yes (Death)
  Sender: FDA-Public Use
  Company Number: None

PATIENT
  Age: 13 Year
  Sex: Female
  Weight: 79 kg

DRUGS (12)
  1. ULTOMIRIS [Suspect]
     Active Substance: RAVULIZUMAB-CWVZ
     Indication: HAEMOLYTIC URAEMIC SYNDROME
     Dosage: ?          OTHER FREQUENCY:ONCE;?
     Route: 042
     Dates: start: 20200317, end: 20200317
  2. ECULIZUMAB [Concomitant]
     Active Substance: ECULIZUMAB
     Dates: start: 20190510, end: 20200304
  3. ATENOLOL. [Concomitant]
     Active Substance: ATENOLOL
  4. AMLODIPINE [Concomitant]
     Active Substance: AMLODIPINE BESYLATE
  5. EPOETIN ALFA [Concomitant]
     Active Substance: ERYTHROPOIETIN
  6. CALCITRIOL. [Concomitant]
     Active Substance: CALCITRIOL
  7. FERROUS SULFATE. [Concomitant]
     Active Substance: FERROUS SULFATE
  8. PENICILLIN V [Concomitant]
     Active Substance: PENICILLIN V
  9. SENNA [Concomitant]
     Active Substance: SENNA LEAF\SENNOSIDES\SENNOSIDES A AND B
  10. SEVELAMER [Concomitant]
     Active Substance: SEVELAMER
  11. ERGOCALCIFEROL. [Concomitant]
     Active Substance: ERGOCALCIFEROL
  12. LOESTRIN 1/20 (OCP) [Concomitant]

REACTIONS (5)
  - Delirium [None]
  - Vasculitis [None]
  - Hypertension [None]
  - Cerebral haemorrhage [None]
  - Dysarthria [None]

NARRATIVE: CASE EVENT DATE: 20200318
